FAERS Safety Report 6847598-1 (Version None)
Quarter: 2010Q3

REPORT INFORMATION
  Report Type: 
  Country: None (occurrence: None)
  Receive Date: 20100714
  Receipt Date: 20100630
  Transmission Date: 20110219
  Serious: Yes (Other)
  Sender: FDA-Public Use
  Company Number: ACO_01291_2010

PATIENT
  Sex: Female
  Weight: 93.441 kg

DRUGS (13)
  1. AMPYRA [Suspect]
     Indication: GAIT DISTURBANCE
     Dosage: 10 MG BID ORAL
     Route: 048
     Dates: start: 20100607
  2. NUVIGIL [Concomitant]
  3. FLUOXETINE [Concomitant]
  4. TRAZODONE [Concomitant]
  5. VALACYCLOVIR [Concomitant]
  6. LORAZEPAM [Concomitant]
  7. BACLOFEN [Concomitant]
  8. SINGULAIR [Concomitant]
  9. OMEPRAZOLE [Concomitant]
  10. BACLOFEN [Concomitant]
  11. ALLEGRA D 24 HOUR [Concomitant]
  12. CORTISONE [Concomitant]
  13. BOTOX [Concomitant]

REACTIONS (5)
  - HEMIPARESIS [None]
  - INITIAL INSOMNIA [None]
  - MIDDLE INSOMNIA [None]
  - MULTIPLE SCLEROSIS RELAPSE [None]
  - STRESS [None]
